FAERS Safety Report 9994492 (Version 2)
Quarter: 2014Q1

REPORT INFORMATION
  Report Type: Spontaneous
  Country: US (occurrence: US)
  Receive Date: 20140311
  Receipt Date: 20140320
  Transmission Date: 20141002
  Serious: Yes (Hospitalization)
  Sender: FDA-Public Use
  Company Number: US-BIOGENIDEC-2014BI019625

PATIENT
  Age: 60 Year
  Sex: Male

DRUGS (10)
  1. TECFIDERA [Suspect]
     Indication: MULTIPLE SCLEROSIS
     Route: 048
     Dates: start: 20130620, end: 20140122
  2. ALEVE [Concomitant]
  3. BACLOFEN [Concomitant]
  4. DULCOLAX [Concomitant]
  5. FLOMAX [Concomitant]
  6. HYDROCHLOROTHIAZIDE [Concomitant]
  7. HYTRIN [Concomitant]
  8. TYLENOL [Concomitant]
  9. LISINOPRIL~HYDROCHLOROTHIAZIDE [Concomitant]
  10. POLYETHYLENE GLYCOL 1000 [Concomitant]

REACTIONS (1)
  - Central nervous system lesion [Recovered/Resolved]
